FAERS Safety Report 7080951-2 (Version None)
Quarter: 2010Q4

REPORT INFORMATION
  Report Type: 
  Country: None (occurrence: None)
  Receive Date: 20101102
  Receipt Date: 20101102
  Transmission Date: 20110411
  Serious: No
  Sender: FDA-Public Use
  Company Number: None

PATIENT
  Age: 59 Year
  Sex: Female
  Weight: 81.6475 kg

DRUGS (3)
  1. TRAMADOL HCL [Suspect]
     Indication: HEADACHE
     Dosage: ONCE-TWICE QID PRN } 10 YRS AGO
  2. TRAMADOL HCL [Suspect]
     Indication: POST HERPETIC NEURALGIA
     Dosage: ONCE-TWICE QID PRN } 10 YRS AGO
  3. TRAMADOL HCL [Suspect]
     Indication: SYSTEMIC LUPUS ERYTHEMATOSUS
     Dosage: ONCE-TWICE QID PRN } 10 YRS AGO

REACTIONS (4)
  - DRUG HYPERSENSITIVITY [None]
  - DRUG INTOLERANCE [None]
  - PRODUCT SUBSTITUTION ISSUE [None]
  - PRURITUS [None]
